FAERS Safety Report 15283922 (Version 1)
Quarter: 2018Q3

REPORT INFORMATION
  Report Type: Spontaneous
  Country: US (occurrence: US)
  Receive Date: 20180816
  Receipt Date: 20180816
  Transmission Date: 20181010
  Serious: No
  Sender: FDA-Public Use
  Company Number: US-TEVA-2018-US-945157

PATIENT

DRUGS (1)
  1. DESIPRAMINE HYDROCHLORIDE. [Suspect]
     Active Substance: DESIPRAMINE HYDROCHLORIDE
     Indication: PRODUCT USED FOR UNKNOWN INDICATION
     Route: 065

REACTIONS (2)
  - Skin discolouration [Unknown]
  - Drug ineffective [Unknown]
